FAERS Safety Report 22148680 (Version 3)
Quarter: 2023Q4

REPORT INFORMATION
  Report Type: Report from Study
  Country: US (occurrence: US)
  Receive Date: 20230328
  Receipt Date: 20231108
  Transmission Date: 20240110
  Serious: Yes (Death, Other)
  Sender: FDA-Public Use
  Company Number: US-TAKEDA-2023TUS032311

PATIENT
  Age: 68 Year
  Sex: Male

DRUGS (1)
  1. VEDOLIZUMAB [Suspect]
     Active Substance: VEDOLIZUMAB
     Indication: Product used for unknown indication
     Dosage: 300 MILLIGRAM
     Route: 042

REACTIONS (2)
  - Death [Fatal]
  - Prostate cancer [Unknown]

NARRATIVE: CASE EVENT DATE: 20230404
